FAERS Safety Report 9196800 (Version 2)
Quarter: 2013Q4

REPORT INFORMATION
  Report Type: Spontaneous
  Country: US (occurrence: US)
  Receive Date: 20130328
  Receipt Date: 20131125
  Transmission Date: 20140711
  Serious: Yes (Other)
  Sender: FDA-Public Use
  Company Number: US-BAYER-2013-038421

PATIENT
  Age: 21 Year
  Sex: Female

DRUGS (5)
  1. OCELLA [Suspect]
  2. AMBIEN [Concomitant]
     Dosage: UNK
     Dates: start: 20041027
  3. LEXAPRO [Concomitant]
     Dosage: 10 MG, DAILY
     Dates: start: 20041027
  4. YAZ [Suspect]
  5. YASMIN [Suspect]

REACTIONS (5)
  - Gallbladder injury [None]
  - Injury [None]
  - Pain [None]
  - Pain [None]
  - Cholecystitis [None]
